FAERS Safety Report 17271792 (Version 1)
Quarter: 2020Q1

REPORT INFORMATION
  Report Type: Other
  Country: IT (occurrence: IT)
  Receive Date: 20200115
  Receipt Date: 20200115
  Transmission Date: 20200409
  Serious: Yes (Hospitalization)
  Sender: FDA-Public Use
  Company Number: IT-SUNRISE PHARMACEUTICAL, INC.-2079012

PATIENT
  Age: 78 Year
  Sex: Male

DRUGS (1)
  1. POLYETHYLENE GLYCOL 3350. [Suspect]
     Active Substance: POLYETHYLENE GLYCOL 3350
     Indication: ANEURYSM REPAIR
     Route: 065

REACTIONS (2)
  - Back pain [Unknown]
  - Anaphylactic reaction [Unknown]
